FAERS Safety Report 20837995 (Version 2)
Quarter: 2022Q2

REPORT INFORMATION
  Report Type: Report from Study
  Country: NL (occurrence: NL)
  Receive Date: 20220517
  Receipt Date: 20220523
  Transmission Date: 20220721
  Serious: Yes (Death)
  Sender: FDA-Public Use
  Company Number: NL-NOVARTISPH-NVSC2022NL112978

PATIENT
  Age: 88 Year
  Sex: Female
  Weight: 61 kg

DRUGS (11)
  1. ACLASTA [Suspect]
     Active Substance: ZOLEDRONIC ACID
     Indication: Osteoporosis
     Dosage: 5 MG, ONCE/SINGLE (HAD ONLY 1 INJECTION)
     Route: 042
     Dates: start: 20210615
  2. BUPRENORPHINE [Concomitant]
     Active Substance: BUPRENORPHINE
     Indication: Product used for unknown indication
     Dosage: 1 DOSAGE FORM, QW (5 ?G/HOUR), 1 X PER WEEK 1 PIECE
     Route: 062
  3. RIVAROXABAN [Concomitant]
     Active Substance: RIVAROXABAN
     Indication: Atrial fibrillation
     Dosage: 20 MG, QD (1 X PER DAY 1 PIECE) STARTED POST-OPERATIVELY
     Route: 048
  4. PANTOPRAZOLE [Concomitant]
     Active Substance: PANTOPRAZOLE
     Indication: Product used for unknown indication
     Dosage: 20 MG, BID ( 2 X A DAY 1 PIECE)
     Route: 048
  5. ALBUTEROL [Concomitant]
     Active Substance: ALBUTEROL
     Indication: Product used for unknown indication
     Dosage: UNK (100UG/DO, IF NECESSARY PER PHYSICIAN?S AGREEMENT)
     Route: 055
  6. ACETAMINOPHEN [Concomitant]
     Active Substance: ACETAMINOPHEN
     Indication: Product used for unknown indication
     Dosage: 2 DOSAGE FORM, TID (IF NECESSARY)
     Route: 048
  7. VIDISIC CARBOGEL [Concomitant]
     Indication: Product used for unknown indication
     Dosage: 2 MILLIGRAM PER GRAM, BID (IF NECESSARY 2 X A DAY PER PHYSICIAN?S AGREEMENT)
     Route: 047
  8. POLYETHYLENE GLYCOLS [Concomitant]
     Active Substance: POLYETHYLENE GLYCOLS
     Indication: Product used for unknown indication
     Dosage: 1 DOSAGE FORM, QD
     Route: 048
  9. OXYCODONE [Concomitant]
     Active Substance: OXYCODONE
     Indication: Product used for unknown indication
     Dosage: 5 MG, (IF NECESSARY 4 TO 6 TIMES A DAY 1 PIECE)
     Route: 048
  10. METOPROLOL [Concomitant]
     Active Substance: METOPROLOL
     Indication: Product used for unknown indication
     Dosage: 25 MG, QD (1 X PER DAY 1 PIECE)
     Route: 048
  11. COSMETICS [Concomitant]
     Active Substance: COSMETICS
     Indication: Product used for unknown indication
     Dosage: UNK, PRN (CETOMACROGOL WITH PETROLEUM JELLY 20%)
     Route: 003

REACTIONS (1)
  - Death [Fatal]

NARRATIVE: CASE EVENT DATE: 20211101
